FAERS Safety Report 8594469-9 (Version None)
Quarter: 2012Q3

REPORT INFORMATION
  Report Type: 
  Country: None (occurrence: None)
  Receive Date: 20120815
  Receipt Date: 20120808
  Transmission Date: 20120928
  Serious: No
  Sender: FDA-Public Use
  Company Number: US-009507513-1208USA004610

PATIENT

DRUGS (1)
  1. ZOCOR [Suspect]
     Indication: BLOOD CHOLESTEROL INCREASED
     Route: 048

REACTIONS (2)
  - MOVEMENT DISORDER [None]
  - MUSCULOSKELETAL PAIN [None]
